FAERS Safety Report 7355489-5 (Version None)
Quarter: 2011Q1

REPORT INFORMATION
  Report Type: 
  Country: None (occurrence: None)
  Receive Date: 20110311
  Receipt Date: 20110311
  Transmission Date: 20110831
  Serious: Yes (Death)
  Sender: FDA-Public Use
  Company Number: None

PATIENT
  Age: 53 Year
  Sex: Male
  Weight: 82.1011 kg

DRUGS (4)
  1. SEROQUEL [Suspect]
     Indication: BIPOLAR DISORDER
     Dosage: 600MG ONCE DAILY ORAL
     Route: 048
     Dates: start: 20100101
  2. SEROQUEL [Suspect]
  3. METOPROLOL TARTRATE [Concomitant]
  4. ELAVIL [Concomitant]

REACTIONS (1)
  - CARDIAC ARREST [None]
